FAERS Safety Report 6821048-3 (Version None)
Quarter: 2010Q3

REPORT INFORMATION
  Report Type: 
  Country: None (occurrence: None)
  Receive Date: 20100707
  Receipt Date: 20071106
  Transmission Date: 20110219
  Serious: No
  Sender: FDA-Public Use
  Company Number: US-PFIZER INC-2007098643

PATIENT
  Sex: Male

DRUGS (1)
  1. SERTRALINE CONCENTRATE [Suspect]
     Route: 048
     Dates: start: 20071008

REACTIONS (2)
  - DRUG ADMINISTRATION ERROR [None]
  - VOMITING [None]
